FAERS Safety Report 9083773 (Version 1)
Quarter: 2013Q1

REPORT INFORMATION
  Report Type: Report from Study
  Country: US (occurrence: US)
  Receive Date: 20130131
  Receipt Date: 20130131
  Transmission Date: 20140127
  Serious: No
  Sender: FDA-Public Use
  Company Number: US-ABBOTT-12P-163-1010961-00

PATIENT
  Age: 32 Year
  Sex: Female

DRUGS (3)
  1. HUMIRA [Suspect]
     Indication: CROHN^S DISEASE
     Dates: start: 2008
  2. UNKNOWN SUPPOSITORY (NON-ABBOTT) [Concomitant]
     Indication: CROHN^S DISEASE
     Route: 054
  3. PREDNISONE [Concomitant]
     Indication: CROHN^S DISEASE

REACTIONS (4)
  - Injection site bruising [Not Recovered/Not Resolved]
  - Injection site pain [Recovered/Resolved]
  - Device malfunction [Unknown]
  - Incorrect dose administered [Unknown]
